FAERS Safety Report 24669513 (Version 1)
Quarter: 2024Q4

REPORT INFORMATION
  Report Type: Spontaneous
  Country: US (occurrence: US)
  Receive Date: 20241127
  Receipt Date: 20241127
  Transmission Date: 20250115
  Serious: Yes (Other)
  Sender: JIANGSU HENGRUI MEDICINE CO., LTD.
  Company Number: US-Jiangsu Hengrui Medicine Co., Ltd.-2166070

PATIENT
  Age: 2 Month
  Sex: Female

DRUGS (5)
  1. CYCLOPHOSPHAMIDE [Suspect]
     Active Substance: CYCLOPHOSPHAMIDE
     Indication: Medulloblastoma
  2. METHOTREXATE [Suspect]
     Active Substance: METHOTREXATE
  3. ETOPOSIDE [Suspect]
     Active Substance: ETOPOSIDE
  4. VINCRISTINE [Suspect]
     Active Substance: VINCRISTINE
  5. CISPLATIN [Suspect]
     Active Substance: CISPLATIN

REACTIONS (3)
  - Hydrocephalus [Unknown]
  - Product use in unapproved indication [Unknown]
  - Cytomegalovirus infection [Unknown]
